FAERS Safety Report 10357609 (Version 1)
Quarter: 2014Q3

REPORT INFORMATION
  Report Type: Spontaneous
  Country: IT (occurrence: IT)
  Receive Date: 20140801
  Receipt Date: 20140801
  Transmission Date: 20150326
  Serious: Yes (Hospitalization)
  Sender: FDA-Public Use
  Company Number: IT-TEVA-497664ISR

PATIENT
  Age: 28 Year
  Sex: Male

DRUGS (2)
  1. LORAZEPAM DOROM [Suspect]
     Active Substance: LORAZEPAM
     Indication: DRUG ABUSE
     Dosage: 10 ML DAILY;
     Route: 048
     Dates: start: 20140617, end: 20140617
  2. ENTACT 10 MG [Suspect]
     Active Substance: ESCITALOPRAM OXALATE
     Indication: DRUG ABUSE
     Dosage: 560 MILLIGRAM DAILY;
     Route: 048
     Dates: start: 20140617, end: 20140617

REACTIONS (2)
  - Drug abuse [Recovered/Resolved]
  - Sopor [Recovered/Resolved]

NARRATIVE: CASE EVENT DATE: 20140617
